FAERS Safety Report 12587785 (Version 1)
Quarter: 2016Q3

REPORT INFORMATION
  Report Type: Spontaneous
  Country: FR (occurrence: FR)
  Receive Date: 20160725
  Receipt Date: 20160725
  Transmission Date: 20161109
  Serious: Yes (Death, Hospitalization)
  Sender: FDA-Public Use
  Company Number: FR-PFIZER INC-2016349255

PATIENT
  Age: 64 Year
  Sex: Female

DRUGS (27)
  1. TAZOCILLINE [Suspect]
     Active Substance: PIPERACILLIN SODIUM\TAZOBACTAM SODIUM
     Indication: FEBRILE BONE MARROW APLASIA
     Dosage: UNK
     Route: 042
     Dates: start: 20160503
  2. PANTOPRAZOLE [Concomitant]
     Active Substance: PANTOPRAZOLE SODIUM
     Dosage: 15 MG, 1X/DAY
  3. ACUPAN [Concomitant]
     Active Substance: NEFOPAM HYDROCHLORIDE
     Dosage: 6 DF, DAILY
  4. ZARZIO [Concomitant]
     Active Substance: FILGRASTIM
     Dosage: 30 DAILY
     Route: 042
  5. OXYNORM [Concomitant]
     Active Substance: OXYCODONE HYDROCHLORIDE
     Indication: ANALGESIC THERAPY
  6. SOLU-MEDROL [Concomitant]
     Active Substance: METHYLPREDNISOLONE SODIUM SUCCINATE
     Dosage: 30 MG, 1X/DAY
     Dates: start: 20160527
  7. AROMASINE [Concomitant]
     Active Substance: EXEMESTANE
     Indication: HORMONE THERAPY
     Dosage: 25 MG, 1X/DAY
     Route: 048
  8. PROPRANOLOL [Concomitant]
     Active Substance: PROPRANOLOL\PROPRANOLOL HYDROCHLORIDE
     Dosage: ONE THIRD OF 40 MG TABLET IN THE MORNING AND IN THE EVENING
     Route: 048
  9. ACTRAPID [Concomitant]
     Active Substance: INSULIN HUMAN
     Route: 058
  10. VANCOMYCIN HCL [Suspect]
     Active Substance: VANCOMYCIN HYDROCHLORIDE
     Dosage: UNK
     Dates: start: 20160507, end: 20160519
  11. VINCRISTINE SULFATE. [Suspect]
     Active Substance: VINCRISTINE SULFATE
     Indication: ACUTE LYMPHOCYTIC LEUKAEMIA
     Dosage: 1 MG ON DAY 6 AND DAY 13
     Route: 042
     Dates: end: 20160507
  12. MEROPENEM ANHYDROUS [Suspect]
     Active Substance: MEROPENEM ANHYDROUS
     Dosage: UNK
     Dates: start: 20160518, end: 20160526
  13. KCL [Concomitant]
     Active Substance: POTASSIUM CHLORIDE
     Dosage: 6 G, OVER 6 HOURS
     Route: 042
  14. TRIFLUCAN [Suspect]
     Active Substance: FLUCONAZOLE
     Dosage: 400 MG, 1X/DAY
     Dates: start: 20160515
  15. PLITICAN [Concomitant]
     Active Substance: ALIZAPRIDE HYDROCHLORIDE
     Indication: NAUSEA
     Dosage: UNK, AS NEEDED
  16. ATARAX [Concomitant]
     Active Substance: HYDROXYZINE\HYDROXYZINE HYDROCHLORIDE
     Dosage: 25 MG, DAILY
  17. IDARUBICIN HCL [Suspect]
     Active Substance: IDARUBICIN HYDROCHLORIDE
     Indication: ACUTE LYMPHOCYTIC LEUKAEMIA
     Dosage: 10 MG, AT DAY 6 AND 7, THEN AT DAY 13 AND 14
     Route: 042
     Dates: end: 20160507
  18. FASTURTEC [Concomitant]
     Active Substance: RASBURICASE
     Indication: HYPERURICAEMIA
  19. INEXIUM /01479302/ [Concomitant]
     Active Substance: ESOMEPRAZOLE MAGNESIUM
     Dosage: 40 MG, DAILY
  20. METHOTREXATE. [Suspect]
     Active Substance: METHOTREXATE
     Indication: ACUTE LYMPHOCYTIC LEUKAEMIA
     Dosage: ON DAY 4
     Route: 037
  21. ZOPHREN /00955301/ [Concomitant]
     Active Substance: ONDANSETRON
     Indication: NAUSEA
     Dosage: UNK, AS NEEDED
  22. CASPOFUNGINE BASE [Suspect]
     Active Substance: CASPOFUNGIN
     Indication: CANDIDA INFECTION
     Dosage: UNK
     Dates: start: 20160509
  23. DEXAMETHASONE. [Suspect]
     Active Substance: DEXAMETHASONE
     Indication: ACUTE LYMPHOCYTIC LEUKAEMIA
     Dosage: 10 MG/M2, DAILY (15 MG) FROM DAY 1 TO DAY 7, THEN FROM DAY 13 TO DAY 16
     Dates: start: 20160423
  24. BACTRIM [Concomitant]
     Active Substance: SULFAMETHOXAZOLE\TRIMETHOPRIM
     Dosage: 3X/WEEK
  25. ZOVIRAX [Concomitant]
     Active Substance: ACYCLOVIR
     Dosage: 200 MG, 3X/DAY
  26. G2 [Concomitant]
     Dosage: 3 L, DAILY
  27. THYROZOL [Concomitant]
     Active Substance: METHIMAZOLE
     Dosage: 20 MG, 1X/DAY

REACTIONS (14)
  - Confusional state [Unknown]
  - Tumour lysis syndrome [None]
  - Systemic candida [None]
  - Blood alkaline phosphatase increased [Not Recovered/Not Resolved]
  - Blood bilirubin increased [Not Recovered/Not Resolved]
  - Candida infection [None]
  - Transaminases increased [Not Recovered/Not Resolved]
  - Nephrogenic diabetes insipidus [Recovered/Resolved]
  - Gamma-glutamyltransferase increased [Not Recovered/Not Resolved]
  - Hepatosplenic candidiasis [None]
  - Diarrhoea [Unknown]
  - Hypokalaemia [Unknown]
  - Acute kidney injury [None]
  - Blood culture positive [None]

NARRATIVE: CASE EVENT DATE: 20160514
